FAERS Safety Report 8416271-0 (Version None)
Quarter: 2012Q2

REPORT INFORMATION
  Report Type: 
  Country: None (occurrence: None)
  Receive Date: 20120606
  Receipt Date: 20120524
  Transmission Date: 20120825
  Serious: Yes (Hospitalization)
  Sender: FDA-Public Use
  Company Number: US-ELI_LILLY_AND_COMPANY-US201205008931

PATIENT
  Age: 33 Year
  Sex: Female

DRUGS (4)
  1. FAMOTIDINE [Concomitant]
     Dosage: 20 MG, BID
  2. FLUOXETINE HYDROCHLORIDE [Suspect]
     Dosage: 20 MG, QD
  3. BECLOMETHASONE DIPROPIONATE [Concomitant]
     Indication: ASTHMA
  4. ALBUTEROL [Concomitant]
     Indication: ASTHMA

REACTIONS (4)
  - PSYCHOTIC DISORDER [None]
  - DISTURBANCE IN SEXUAL AROUSAL [None]
  - ALCOHOL ABUSE [None]
  - BIPOLAR I DISORDER [None]
